FAERS Safety Report 25440248 (Version 1)
Quarter: 2025Q2

REPORT INFORMATION
  Report Type: Spontaneous
  Country: US (occurrence: US)
  Receive Date: 20250616
  Receipt Date: 20250616
  Transmission Date: 20250717
  Serious: Yes (Hospitalization, Other)
  Sender: ABBVIE
  Company Number: US-ABBVIE-6321323

PATIENT
  Age: 65 Year
  Sex: Female
  Weight: 83.9 kg

DRUGS (2)
  1. HUMIRA [Suspect]
     Active Substance: ADALIMUMAB
     Indication: Rheumatoid arthritis
     Dosage: FORM STRENGTH: 40 MILLIGRAM
     Route: 058
     Dates: start: 202401, end: 202505
  2. FLUTICASONE [Concomitant]
     Active Substance: FLUTICASONE
     Indication: Sleep disorder

REACTIONS (2)
  - Myocardial infarction [Recovering/Resolving]
  - Pain [Unknown]

NARRATIVE: CASE EVENT DATE: 20250514
